FAERS Safety Report 25143646 (Version 1)
Quarter: 2025Q2

REPORT INFORMATION
  Report Type: Spontaneous
  Country: NL (occurrence: NL)
  Receive Date: 20250401
  Receipt Date: 20250401
  Transmission Date: 20250716
  Serious: Yes (Hospitalization, Other)
  Sender: COSETTE PHARMACEUTICALS INC
  Company Number: NL-COSETTE-CP2025NL000308

PATIENT
  Age: 4 Decade
  Sex: Female

DRUGS (1)
  1. IMIQUIMOD [Suspect]
     Active Substance: IMIQUIMOD
     Indication: Cervical dysplasia
     Route: 061

REACTIONS (12)
  - Distributive shock [Recovered/Resolved]
  - Septic shock [Recovered/Resolved]
  - Toxic shock syndrome [Recovered/Resolved]
  - Bacteraemia [Recovered/Resolved]
  - Systemic inflammatory response syndrome [Recovered/Resolved]
  - Adverse reaction [Recovered/Resolved]
  - Condition aggravated [Recovered/Resolved]
  - Malaise [Recovered/Resolved]
  - Influenza like illness [Recovered/Resolved]
  - Myalgia [Recovered/Resolved]
  - Pyrexia [Recovered/Resolved]
  - Product use in unapproved indication [Unknown]
